FAERS Safety Report 20911557 (Version 2)
Quarter: 2022Q2

REPORT INFORMATION
  Report Type: Spontaneous
  Country: US (occurrence: None)
  Receive Date: 20220603
  Receipt Date: 20220616
  Transmission Date: 20220721
  Serious: No
  Sender: FDA-Public Use
  Company Number: 2022A178559

PATIENT
  Age: 27402 Day
  Sex: Male
  Weight: 79.4 kg

DRUGS (1)
  1. FASENRA [Suspect]
     Active Substance: BENRALIZUMAB
     Indication: Asthma
     Dosage: EVERY 12 WEEKS
     Route: 058
     Dates: start: 20210403

REACTIONS (10)
  - Pulmonary congestion [Not Recovered/Not Resolved]
  - Chills [Recovered/Resolved]
  - Wheezing [Not Recovered/Not Resolved]
  - Cough [Not Recovered/Not Resolved]
  - Dyspnoea [Unknown]
  - Productive cough [Unknown]
  - Nasal congestion [Unknown]
  - Pyrexia [Recovered/Resolved]
  - Product use issue [Unknown]
  - Incorrect route of product administration [Unknown]

NARRATIVE: CASE EVENT DATE: 20210403
